FAERS Safety Report 6572848-9 (Version None)
Quarter: 2010Q1

REPORT INFORMATION
  Report Type: 
  Country: None (occurrence: None)
  Receive Date: 20100205
  Receipt Date: 20100125
  Transmission Date: 20100710
  Serious: Yes (Hospitalization)
  Sender: FDA-Public Use
  Company Number: IE-MEDIMMUNE-MEDI-0010134

PATIENT
  Sex: Male
  Weight: 3.25 kg

DRUGS (4)
  1. SYNAGIS [Suspect]
     Dates: start: 20091116, end: 20091208
  2. SYNAGIS [Suspect]
     Dates: start: 20100105, end: 20100105
  3. KAPSOVIT [Concomitant]
     Indication: VITAMIN SUPPLEMENTATION
     Route: 048
  4. FERROUS SULFATE TAB [Concomitant]

REACTIONS (3)
  - COUGH [None]
  - INCREASED UPPER AIRWAY SECRETION [None]
  - RESPIRATORY SYNCYTIAL VIRUS BRONCHIOLITIS [None]
